FAERS Safety Report 9539508 (Version 1)
Quarter: 2013Q2

REPORT INFORMATION
  Report Type: Spontaneous
  Country: US (occurrence: None)
  Receive Date: 20130521
  Receipt Date: 20130521
  Transmission Date: 20140414
  Serious: Yes (Other)
  Sender: FDA-Public Use
  Company Number: 1000042458

PATIENT
  Age: 50 Year
  Sex: Female

DRUGS (1)
  1. TUDORZA PRESSAIR [Suspect]
     Indication: BRONCHITIS CHRONIC
     Dosage: 800 MCG (400 MCG, 2 IN 1 D), RESPIRATORY, INHALATION
     Route: 055
     Dates: start: 20130202

REACTIONS (3)
  - Nasal congestion [None]
  - Bronchitis [None]
  - Upper-airway cough syndrome [None]
